FAERS Safety Report 10290292 (Version 1)
Quarter: 2014Q3

REPORT INFORMATION
  Report Type: Spontaneous
  Country: US (occurrence: None)
  Receive Date: 20140707
  Receipt Date: 20140707
  Transmission Date: 20150326
  Serious: No
  Sender: FDA-Public Use
  Company Number: None

PATIENT
  Age: 26 Year
  Sex: Female
  Weight: 48.54 kg

DRUGS (1)
  1. SMZ-TMP DS TABS AUROBINDO PHARM [Suspect]
     Active Substance: SULFAMETHOXAZOLE\TRIMETHOPRIM
     Indication: URINARY TRACT INFECTION
     Dosage: 1 TABLET TWICE DAILY TAKEN BY MOUTH
     Route: 048
     Dates: start: 20140702, end: 20140703

REACTIONS (9)
  - Back pain [None]
  - Chills [None]
  - Headache [None]
  - Chest pain [None]
  - Nausea [None]
  - Insomnia [None]
  - Limb discomfort [None]
  - Dyspnoea [None]
  - Sleep disorder [None]

NARRATIVE: CASE EVENT DATE: 20140702
